FAERS Safety Report 24826110 (Version 1)
Quarter: 2025Q1

REPORT INFORMATION
  Report Type: Spontaneous
  Country: US (occurrence: US)
  Receive Date: 20250109
  Receipt Date: 20250109
  Transmission Date: 20250408
  Serious: Yes (Hospitalization, Other)
  Sender: PFIZER
  Company Number: US-PFIZER INC-PV202300203739

PATIENT
  Age: 76 Year
  Sex: Female

DRUGS (5)
  1. IBRANCE [Suspect]
     Active Substance: PALBOCICLIB
     Indication: Breast cancer metastatic
     Route: 048
     Dates: start: 20200111
  2. IBRANCE [Suspect]
     Active Substance: PALBOCICLIB
     Indication: Metastases to bone
     Route: 048
  3. IBRANCE [Suspect]
     Active Substance: PALBOCICLIB
     Route: 048
  4. LETROZOLE [Concomitant]
     Active Substance: LETROZOLE
     Dosage: 2.5 MG DAILY
     Dates: start: 202008
  5. ASPIRIN [Concomitant]
     Active Substance: ASPIRIN

REACTIONS (4)
  - Cerebrovascular accident [Recovered/Resolved]
  - Cytopenia [Unknown]
  - Hepatic enzyme increased [Recovered/Resolved]
  - Product prescribing error [Unknown]
